FAERS Safety Report 10253504 (Version 2)
Quarter: 2014Q2

REPORT INFORMATION
  Report Type: Spontaneous
  Country: US (occurrence: US)
  Receive Date: 20140623
  Receipt Date: 20140627
  Transmission Date: 20141212
  Serious: Yes (Other)
  Sender: FDA-Public Use
  Company Number: US-BAYER-2014-089831

PATIENT
  Age: 76 Year
  Sex: Female
  Weight: 79.36 kg

DRUGS (3)
  1. STIVARGA [Suspect]
     Indication: GASTROINTESTINAL STROMAL CANCER
     Dosage: 160 MG, QD
     Route: 048
     Dates: start: 20140529, end: 20140603
  2. STIVARGA [Suspect]
     Indication: GASTROINTESTINAL STROMAL CANCER
     Dosage: 160 MG, QD
     Route: 048
     Dates: start: 20140606, end: 20140610
  3. STIVARGA [Suspect]
     Indication: GASTROINTESTINAL STROMAL CANCER
     Dosage: 120 MG, DAILY
     Route: 048
     Dates: start: 20140617

REACTIONS (8)
  - Conjunctival haemorrhage [Recovering/Resolving]
  - Asthenia [Not Recovered/Not Resolved]
  - Fatigue [Not Recovered/Not Resolved]
  - Musculoskeletal pain [Not Recovered/Not Resolved]
  - Neck pain [Not Recovered/Not Resolved]
  - Back pain [Not Recovered/Not Resolved]
  - Stomatitis [Not Recovered/Not Resolved]
  - Rash generalised [Recovering/Resolving]
